FAERS Safety Report 4636478-8 (Version None)
Quarter: 2005Q2

REPORT INFORMATION
  Report Type: 
  Country: None (occurrence: None)
  Receive Date: 20050413
  Receipt Date: 20050413
  Transmission Date: 20051028
  Serious: Yes (Disabling)
  Sender: FDA-Public Use
  Company Number: None

PATIENT
  Sex: Male
  Weight: 141.9759 kg

DRUGS (4)
  1. ZYCAM [Suspect]
     Indication: NASOPHARYNGITIS
     Dosage: NASAL SPRAY
     Route: 045
     Dates: start: 20041110, end: 20051202
  2. ANTIBIOTICS [Concomitant]
  3. STERIOD NASAL SPRAY [Concomitant]
  4. ZINC TABLETS [Concomitant]

REACTIONS (2)
  - AGEUSIA [None]
  - ANOSMIA [None]
